FAERS Safety Report 4838150-8 (Version None)
Quarter: 2005Q4

REPORT INFORMATION
  Report Type: 
  Country: None (occurrence: None)
  Receive Date: 20051128
  Receipt Date: 20051006
  Transmission Date: 20060501
  Serious: Yes (Other)
  Sender: FDA-Public Use
  Company Number: IE-AVENTIS-200519327GDDC

PATIENT

DRUGS (1)
  1. RIFATER [Suspect]
     Dosage: DOSE: UNK
     Dates: start: 20051001

REACTIONS (3)
  - HEPATIC VEIN THROMBOSIS [None]
  - HEPATOTOXICITY [None]
  - LIVER FUNCTION TEST ABNORMAL [None]
